FAERS Safety Report 4507201-2 (Version None)
Quarter: 2004Q4

REPORT INFORMATION
  Report Type: 
  Country: None (occurrence: None)
  Receive Date: 20041025
  Receipt Date: 20040520
  Transmission Date: 20050328
  Serious: Yes (Other)
  Sender: FDA-Public Use
  Company Number: US-JNJFOC-20040505106

PATIENT
  Age: 56 Year
  Sex: Female
  Weight: 76.2043 kg

DRUGS (3)
  1. INFLIXIMAB (INFLIXIMAB , RECOMBINANT) LYOPHILIZED POWDER [Suspect]
     Indication: RHEUMATOID ARTHRITIS
     Dosage: INTRAVENOUS
     Route: 042
     Dates: start: 20001019
  2. ASPIRIN [Concomitant]
  3. CALTRATE (CALCIUM CARBONATE) [Concomitant]

REACTIONS (1)
  - INFUSION RELATED REACTION [None]
